FAERS Safety Report 5616117-X (Version None)
Quarter: 2008Q1

REPORT INFORMATION
  Report Type: 
  Country: None (occurrence: None)
  Receive Date: 20080206
  Receipt Date: 20080125
  Transmission Date: 20080703
  Serious: Yes (Death)
  Sender: FDA-Public Use
  Company Number: GB-PFIZER INC-2008009152

PATIENT
  Age: 56 Year
  Sex: Male

DRUGS (5)
  1. CHANTIX [Suspect]
     Indication: SMOKING CESSATION THERAPY
     Route: 048
  2. ASPIRIN [Concomitant]
     Route: 048
  3. ATORVASTATIN CALCIUM [Concomitant]
     Route: 048
  4. GLYCERYL TRINITRATE [Concomitant]
     Route: 055
  5. VERAPAMIL [Concomitant]
     Route: 048

REACTIONS (1)
  - DEATH [None]
